FAERS Safety Report 21680919 (Version 1)
Quarter: 2022Q4

REPORT INFORMATION
  Report Type: Spontaneous
  Country: ES (occurrence: None)
  Receive Date: 20221205
  Receipt Date: 20221205
  Transmission Date: 20230113
  Serious: Yes (Other)
  Sender: FDA-Public Use
  Company Number: 2022A391653

PATIENT
  Age: 74 Year
  Sex: Male

DRUGS (8)
  1. OMEPRAZOLE [Suspect]
     Active Substance: OMEPRAZOLE
     Route: 048
     Dates: start: 20220906
  2. ACYCLOVIR [Suspect]
     Active Substance: ACYCLOVIR
     Route: 048
     Dates: start: 20220906, end: 20220919
  3. ENOXAPARIN SODIUM [Suspect]
     Active Substance: ENOXAPARIN SODIUM
     Dosage: 4,000 IU (40 MG)/0.4 ML SOLUTION FOR INJECTION IN SYRINGE PREFILLED, 10 X 0.4 ML PREFILLED SYRINGES
     Route: 058
     Dates: start: 20220906
  4. DARZALEX [Suspect]
     Active Substance: DARATUMUMAB
     Indication: Plasma cell myeloma
     Dosage: 1 VIAL OF 15 ML
     Route: 058
     Dates: start: 20220906, end: 20220913
  5. LENALIDOMIDE [Suspect]
     Active Substance: LENALIDOMIDE
     Indication: Plasma cell myeloma
     Route: 048
     Dates: start: 20220906, end: 20220919
  6. MASTICAL D [Concomitant]
     Dosage: 500 MG/400 IU
     Route: 048
     Dates: start: 20220906
  7. ZOLEDRONIC ACID [Concomitant]
     Active Substance: ZOLEDRONIC ACID
     Route: 058
     Dates: start: 20220906, end: 20220906
  8. DEXAMETHASONE [Concomitant]
     Active Substance: DEXAMETHASONE
     Indication: Plasma cell myeloma
     Dosage: 20 MG TABLETS 30 TABLETS
     Route: 048
     Dates: start: 20220906, end: 20220914

REACTIONS (1)
  - Mixed liver injury [Recovered/Resolved]

NARRATIVE: CASE EVENT DATE: 20220919
